FAERS Safety Report 11459149 (Version 1)
Quarter: 2015Q3

REPORT INFORMATION
  Report Type: Report from Study
  Country: JP (occurrence: JP)
  Receive Date: 20150904
  Receipt Date: 20150904
  Transmission Date: 20151125
  Serious: Yes (Hospitalization, Other)
  Sender: FDA-Public Use
  Company Number: JP-BRISTOL-MYERS SQUIBB COMPANY-BMS-2015-057395

PATIENT
  Age: 65 Year
  Sex: Male
  Weight: 74 kg

DRUGS (1)
  1. NIVOLUMAB [Suspect]
     Active Substance: NIVOLUMAB
     Indication: HEPATOCELLULAR CARCINOMA
     Dosage: 3 MG/KG, Q2WK
     Route: 042
     Dates: start: 20150819

REACTIONS (1)
  - IIIrd nerve paralysis [Not Recovered/Not Resolved]

NARRATIVE: CASE EVENT DATE: 20150820
